FAERS Safety Report 5003047-X (Version None)
Quarter: 2006Q2

REPORT INFORMATION
  Report Type: 
  Country: None (occurrence: None)
  Receive Date: 20060516
  Receipt Date: 20041104
  Transmission Date: 20061013
  Serious: Yes (Disabling)
  Sender: FDA-Public Use
  Company Number: US-ROCHE-385701

PATIENT
  Age: 37 Year
  Sex: Female
  Weight: 81.6 kg

DRUGS (1)
  1. ACCUTANE [Suspect]
     Indication: ACNE
     Route: 048
     Dates: start: 19930615, end: 19940615

REACTIONS (33)
  - ANGIOPATHY [None]
  - ANXIETY [None]
  - ARTHRITIS [None]
  - BACK INJURY [None]
  - BLOOD TRIGLYCERIDES INCREASED [None]
  - COLITIS [None]
  - COLITIS ULCERATIVE [None]
  - COLLAGEN DISORDER [None]
  - CROHN'S DISEASE [None]
  - DEPRESSION [None]
  - DERMATITIS [None]
  - DIPLOPIA [None]
  - FIBROMYALGIA [None]
  - GASTROINTESTINAL DISORDER [None]
  - GASTROOESOPHAGEAL REFLUX DISEASE [None]
  - HAND FRACTURE [None]
  - HEADACHE [None]
  - INFLAMMATORY BOWEL DISEASE [None]
  - INJURY [None]
  - INTERNAL INJURY [None]
  - INTESTINAL HAEMORRHAGE [None]
  - IRRITABLE BOWEL SYNDROME [None]
  - MULTI-ORGAN DISORDER [None]
  - NAUSEA [None]
  - OCCUPATIONAL EXPOSURE TO TOXIC AGENT [None]
  - OESOPHAGITIS [None]
  - RADICULAR PAIN [None]
  - RECTAL HAEMORRHAGE [None]
  - ROSACEA [None]
  - SINUSITIS [None]
  - SPINAL OSTEOARTHRITIS [None]
  - TINNITUS [None]
  - WEIGHT INCREASED [None]
